FAERS Safety Report 5836348-3 (Version None)
Quarter: 2008Q3

REPORT INFORMATION
  Report Type: 
  Country: None (occurrence: None)
  Receive Date: 20080805
  Receipt Date: 20080722
  Transmission Date: 20090109
  Serious: Yes (Hospitalization, Other)
  Sender: FDA-Public Use
  Company Number: 2008AL003240

PATIENT
  Age: 66 Year
  Sex: Female
  Weight: 72.5755 kg

DRUGS (13)
  1. DIGOXIN [Suspect]
     Indication: CARDIAC DISORDER
     Dosage: 0.25MG DAILY PO
     Route: 048
     Dates: start: 20030610
  2. XANAX [Concomitant]
  3. TRICOR [Concomitant]
  4. KLONOPIN [Concomitant]
  5. LIPITOR [Concomitant]
  6. ACEBUTOLOL [Concomitant]
  7. AMLODIPINE [Concomitant]
  8. NIACIN [Concomitant]
  9. ASPIRIN [Concomitant]
  10. NORVASC [Concomitant]
  11. PLAVIX [Concomitant]
  12. PROBIOTIC [Concomitant]
  13. DARVOCET [Concomitant]

REACTIONS (11)
  - ANXIETY [None]
  - ASTHENIA [None]
  - CHEST PAIN [None]
  - DIZZINESS [None]
  - NAUSEA [None]
  - NECK PAIN [None]
  - PAIN IN EXTREMITY [None]
  - PHARMACEUTICAL PRODUCT COMPLAINT [None]
  - SPINAL CORD DISORDER [None]
  - STOMACH DISCOMFORT [None]
  - VOMITING [None]
